FAERS Safety Report 9896764 (Version 1)
Quarter: 2014Q1

REPORT INFORMATION
  Report Type: Spontaneous
  Country: US (occurrence: US)
  Receive Date: 20140213
  Receipt Date: 20140213
  Transmission Date: 20141002
  Serious: No
  Sender: FDA-Public Use
  Company Number: US-BRISTOL-MYERS SQUIBB COMPANY-19187509

PATIENT
  Age: 58 Year
  Sex: Female
  Weight: 89.34 kg

DRUGS (3)
  1. ORENCIA FOR INJ [Suspect]
     Indication: RHEUMATOID ARTHRITIS
     Dosage: LAST INF:08AUG2013?TOTAL INF:2
     Route: 042
     Dates: start: 2013
  2. BENADRYL [Concomitant]
     Indication: PREMEDICATION
  3. SOLU-MEDROL [Concomitant]
     Indication: PREMEDICATION

REACTIONS (11)
  - Urticaria [Unknown]
  - Pruritus [Unknown]
  - Oral mucosal blistering [Unknown]
  - Oedema mouth [Unknown]
  - Local swelling [Unknown]
  - Fluid retention [Unknown]
  - Arthralgia [Unknown]
  - Back pain [Unknown]
  - Faeces discoloured [Unknown]
  - Diarrhoea [Unknown]
  - Hyperhidrosis [Unknown]
